FAERS Safety Report 5819915-2 (Version None)
Quarter: 2008Q3

REPORT INFORMATION
  Report Type: 
  Country: None (occurrence: None)
  Receive Date: 20080717
  Receipt Date: 20080710
  Transmission Date: 20090109
  Serious: Yes (Hospitalization, Other)
  Sender: FDA-Public Use
  Company Number: 163-21880-07100771

PATIENT
  Age: 84 Year
  Sex: Female

DRUGS (2)
  1. REVLIMID [Suspect]
     Indication: MYELODYSPLASTIC SYNDROME
     Dosage: 5 MG, DAILY, ORAL; 3X WEEKLY, ORAL
     Route: 048
     Dates: start: 20060630
  2. REVLIMID [Suspect]
     Indication: MYELODYSPLASTIC SYNDROME
     Dosage: 5 MG, DAILY, ORAL; 3X WEEKLY, ORAL
     Route: 048
     Dates: start: 20070101

REACTIONS (6)
  - BLOOD POTASSIUM DECREASED [None]
  - CATARACT [None]
  - CONTUSION [None]
  - DYSURIA [None]
  - POST PROCEDURAL HAEMORRHAGE [None]
  - SKIN DISCOLOURATION [None]
